FAERS Safety Report 19353430 (Version 1)
Quarter: 2021Q2

REPORT INFORMATION
  Report Type: Spontaneous
  Country: US (occurrence: US)
  Receive Date: 20210531
  Receipt Date: 20210531
  Transmission Date: 20210717
  Serious: No
  Sender: FDA-Public Use
  Company Number: US-PURDUE-USA-2020-0151952

PATIENT
  Sex: Male

DRUGS (1)
  1. OXYCONTIN [Suspect]
     Active Substance: OXYCODONE HYDROCHLORIDE
     Indication: SURGERY
     Dosage: 1 TABLET
     Route: 048
     Dates: start: 1999, end: 1999

REACTIONS (7)
  - Nausea [Unknown]
  - Unevaluable event [Unknown]
  - Hypersensitivity [Unknown]
  - Depression [Unknown]
  - Fear of death [Unknown]
  - Euphoric mood [Unknown]
  - Mental disorder [Unknown]
